FAERS Safety Report 9518396 (Version 1)
Quarter: 2013Q3

REPORT INFORMATION
  Report Type: Spontaneous
  Country: US (occurrence: None)
  Receive Date: 20130910
  Receipt Date: 20130910
  Transmission Date: 20140515
  Serious: Yes (Other)
  Sender: FDA-Public Use
  Company Number: None

PATIENT
  Age: 43 Year
  Sex: Female

DRUGS (6)
  1. TASIGNA 150MG NOVARTIS [Suspect]
     Indication: LEUKAEMIA
     Route: 048
     Dates: start: 20130927
  2. PROCHLORPERZINE [Concomitant]
  3. MORPHINE SULFATE [Concomitant]
  4. VICODIN [Concomitant]
  5. PREMARIN [Concomitant]
  6. CYCLO BENAZPRINE [Concomitant]

REACTIONS (3)
  - Dermatitis acneiform [None]
  - Pruritus [None]
  - Dizziness [None]
